FAERS Safety Report 9786622 (Version 1)
Quarter: 2013Q4

REPORT INFORMATION
  Report Type: Spontaneous
  Country: IT (occurrence: IT)
  Receive Date: 20131227
  Receipt Date: 20131227
  Transmission Date: 20140711
  Serious: Yes (Hospitalization)
  Sender: FDA-Public Use
  Company Number: PHHY2013IT150649

PATIENT
  Sex: Female

DRUGS (7)
  1. LEVOFLOXACIN [Suspect]
     Indication: RESPIRATORY DISORDER
     Dosage: 500 MG, QD
     Route: 048
     Dates: start: 20131121, end: 20131124
  2. COUMADIN [Concomitant]
     Dosage: 5 MG, UNK
  3. LANITOP [Concomitant]
  4. LASITONE [Concomitant]
  5. PANTOPAN [Concomitant]
     Dosage: 40 MG, UNK
  6. CLENIL [Concomitant]
  7. FLUIBRON [Concomitant]

REACTIONS (3)
  - Hallucinations, mixed [Recovering/Resolving]
  - Hyperhidrosis [Recovering/Resolving]
  - Tremor [Recovering/Resolving]
